FAERS Safety Report 8779508 (Version 3)
Quarter: 2013Q2

REPORT INFORMATION
  Report Type: Report from Study
  Country: BR (occurrence: BR)
  Receive Date: 20120912
  Receipt Date: 20130627
  Transmission Date: 20140414
  Serious: Yes (Death, Hospitalization, Other)
  Sender: FDA-Public Use
  Company Number: BR-ROCHE-1109695

PATIENT
  Sex: Female
  Weight: 67 kg

DRUGS (6)
  1. PEG-INTERFERON ALFA 2A [Suspect]
     Indication: HEPATITIS C
     Route: 042
  2. FRUSAMIDE [Concomitant]
     Indication: ABDOMINAL DISTENSION
     Route: 065
  3. PROPANOLOLI HYDROCHLORIDUM [Concomitant]
     Route: 065
  4. OMEPRAZOLE [Concomitant]
     Route: 065
  5. INSULINE [Concomitant]
     Route: 065
  6. UNSPECIFIED MEDICATION [Concomitant]
     Route: 065

REACTIONS (17)
  - Death [Fatal]
  - Ascites [Not Recovered/Not Resolved]
  - Oesophageal disorder [Unknown]
  - Gastric disorder [Unknown]
  - Abdominal infection [Unknown]
  - Dyspnoea [Unknown]
  - Cardiac arrest [Unknown]
  - Renal failure [Unknown]
  - Hepatic cirrhosis [Unknown]
  - Varices oesophageal [Unknown]
  - Thrombosis [Unknown]
  - Cataract [Unknown]
  - Abdominal pain [Unknown]
  - Muscle spasms [Unknown]
  - Local swelling [Unknown]
  - Fatigue [Unknown]
  - Malaise [Unknown]
